FAERS Safety Report 5733605-6 (Version None)
Quarter: 2008Q2

REPORT INFORMATION
  Report Type: 
  Country: None (occurrence: None)
  Receive Date: 20080509
  Receipt Date: 20080430
  Transmission Date: 20081010
  Serious: Yes (Other)
  Sender: FDA-Public Use
  Company Number: US-PFIZER INC-2008037839

PATIENT
  Sex: Female
  Weight: 62.272 kg

DRUGS (9)
  1. REVATIO [Suspect]
     Indication: PULMONARY HYPERTENSION
     Route: 048
     Dates: start: 20080429, end: 20080429
  2. MIRAPEX [Concomitant]
     Dosage: TEXT:0.125
  3. HYZAAR [Concomitant]
     Dosage: TEXT:50/12.5MG
  4. FLECAINIDE ACETATE [Concomitant]
  5. CRESTOR [Concomitant]
  6. WARFARIN SODIUM [Concomitant]
  7. SPIRIVA [Concomitant]
  8. TOPROL-XL [Concomitant]
  9. DIAZEPAM [Concomitant]

REACTIONS (1)
  - ABASIA [None]
